FAERS Safety Report 18711474 (Version 1)
Quarter: 2021Q1

REPORT INFORMATION
  Report Type: Spontaneous
  Country: US (occurrence: US)
  Receive Date: 20210106
  Receipt Date: 20210106
  Transmission Date: 20210419
  Serious: No
  Sender: FDA-Public Use
  Company Number: None

PATIENT
  Age: 72 Year
  Sex: Female

DRUGS (1)
  1. MAVYRET [Suspect]
     Active Substance: GLECAPREVIR\PIBRENTASVIR
     Dosage: ?          OTHER DOSE:TAKE 3 TABLETS;?
     Route: 048
     Dates: start: 202012

REACTIONS (3)
  - Breast cancer [None]
  - Fatigue [None]
  - Dyspepsia [None]

NARRATIVE: CASE EVENT DATE: 20201221
